FAERS Safety Report 6267785-3 (Version None)
Quarter: 2009Q3

REPORT INFORMATION
  Report Type: 
  Country: None (occurrence: None)
  Receive Date: 20090714
  Receipt Date: 20090520
  Transmission Date: 20100115
  Serious: Yes (Hospitalization, Other)
  Sender: FDA-Public Use
  Company Number: BR-PFIZER INC-2009187951

PATIENT
  Sex: Male
  Weight: 78.3 kg

DRUGS (11)
  1. MARAVIROC [Suspect]
     Indication: HIV INFECTION
     Dosage: 150 MG, 2X/DAY
     Route: 048
     Dates: start: 20080805
  2. CIPROFIBRATE [Concomitant]
     Dosage: UNK
     Route: 048
     Dates: start: 20081119
  3. ASCORBIC ACID [Concomitant]
     Dosage: UNK
     Route: 048
     Dates: start: 19920101
  4. VALACICLOVIR [Concomitant]
     Dosage: UNK
     Route: 048
     Dates: start: 20010101
  5. FLUTICASONE PROPIONATE [Concomitant]
     Dosage: UNK
     Route: 055
     Dates: start: 20080810
  6. VITAMIN E [Concomitant]
     Dosage: UNK
     Route: 048
     Dates: start: 19920101
  7. TENOFOVIR [Concomitant]
     Dosage: UNK
     Route: 048
     Dates: start: 20040815
  8. LAMIVUDINE [Concomitant]
     Dosage: UNK
     Route: 048
     Dates: start: 20031014
  9. RALTEGRAVIR [Concomitant]
     Dosage: UNK
     Route: 048
     Dates: start: 20080805
  10. DARUNAVIR [Concomitant]
     Dosage: UNK
     Route: 048
     Dates: start: 20050321
  11. RITONAVIR [Concomitant]
     Dosage: UNK
     Route: 048
     Dates: start: 20010922

REACTIONS (2)
  - NEOPLASM OF APPENDIX [None]
  - PSEUDOMYXOMA PERITONEI [None]
